FAERS Safety Report 8185126-1 (Version None)
Quarter: 2012Q1

REPORT INFORMATION
  Report Type: 
  Country: None (occurrence: None)
  Receive Date: 20120305
  Receipt Date: 20120228
  Transmission Date: 20120608
  Serious: Yes (Other)
  Sender: FDA-Public Use
  Company Number: JP-PFIZER INC-2012015873

PATIENT
  Age: 76 Year
  Sex: Male
  Weight: 69 kg

DRUGS (15)
  1. JANUVIA [Concomitant]
     Indication: DIABETES MELLITUS
     Dosage: 50 MG, 1X/DAY
     Route: 048
     Dates: start: 20110511
  2. STRONG NEO-MINOPHAGEN C [Concomitant]
     Indication: HEPATITIS
     Dosage: 40 ML, 1X/DAY
     Route: 042
     Dates: start: 20110302
  3. ALLOPURINOL [Concomitant]
     Indication: GOUT
     Dosage: 100 MG, 1X/DAY
     Route: 048
     Dates: start: 20110406
  4. LYRICA [Suspect]
     Indication: ARTHRALGIA
     Dosage: 150 MG, 2X/DAY
     Route: 048
     Dates: start: 20110926, end: 20111219
  5. LYRICA [Suspect]
     Indication: PAIN IN EXTREMITY
  6. LYRICA [Suspect]
     Indication: HYPOAESTHESIA
  7. PRORENAL [Concomitant]
     Dosage: UNK
     Route: 048
  8. MONTELUKAST SODIUM [Concomitant]
     Dosage: UNK
     Route: 048
  9. URSO 250 [Concomitant]
     Indication: LIVER DISORDER
     Dosage: 300 MG, 3X/DAY
     Route: 048
     Dates: start: 20110406
  10. LASIX [Concomitant]
     Indication: OEDEMA
     Dosage: 20 MG, 1X/DAY
     Route: 048
     Dates: start: 20110323
  11. PLETAL [Concomitant]
     Indication: PERIPHERAL ARTERIAL OCCLUSIVE DISEASE
     Dosage: 100 MG, 2X/DAY
     Route: 048
     Dates: start: 20110622
  12. SHAKUYAKU-KANZO-TO [Concomitant]
     Indication: MUSCLE SPASMS
     Dosage: 7.5 G, 3X/DAY
     Route: 048
     Dates: start: 20110930, end: 20111023
  13. ALDACTONE [Concomitant]
     Indication: HYPERTENSION
     Dosage: 25 MG, 1X/DAY
     Route: 048
     Dates: start: 20110416
  14. BISOPROLOL FUMARATE [Concomitant]
     Indication: HYPERTENSION
     Dosage: 2.5 MG, 1X/DAY
     Route: 048
     Dates: start: 20110406
  15. URSO 250 [Concomitant]
     Indication: HEPATITIS

REACTIONS (1)
  - BLOOD CREATINE PHOSPHOKINASE INCREASED [None]
